FAERS Safety Report 14921075 (Version 1)
Quarter: 2018Q2

REPORT INFORMATION
  Report Type: Spontaneous
  Country: BR (occurrence: BR)
  Receive Date: 20180521
  Receipt Date: 20180521
  Transmission Date: 20180711
  Serious: Yes (Other)
  Sender: FDA-Public Use
  Company Number: PHHY2018BR069327

PATIENT
  Sex: Female
  Weight: 64 kg

DRUGS (4)
  1. VENLAFAXINE [Suspect]
     Active Substance: VENLAFAXINE HYDROCHLORIDE
     Indication: FIBROMYALGIA
     Dosage: 4 DF, UNK
     Route: 065
  2. TRILEPTAL [Suspect]
     Active Substance: OXCARBAZEPINE
     Indication: NEURALGIA
     Route: 065
  3. OLCADIL [Suspect]
     Active Substance: CLOXAZOLAM
     Indication: ANXIOLYTIC THERAPY
     Dosage: 1 DF,  QD, AT NIGHT
     Route: 048
     Dates: start: 1998
  4. BROMAZEPAM [Suspect]
     Active Substance: BROMAZEPAM
     Indication: PRODUCT USED FOR UNKNOWN INDICATION
     Route: 065

REACTIONS (12)
  - Palpitations [Not Recovered/Not Resolved]
  - Depression [Unknown]
  - Muscle contracture [Unknown]
  - Arthralgia [Unknown]
  - Mood altered [Unknown]
  - Pain [Unknown]
  - Muscle spasms [Unknown]
  - Malaise [Unknown]
  - Tremor [Unknown]
  - Drug withdrawal syndrome [Unknown]
  - Insomnia [Unknown]
  - Spinal disorder [Unknown]
